FAERS Safety Report 21988952 (Version 2)
Quarter: 2023Q1

REPORT INFORMATION
  Report Type: Spontaneous
  Country: JP (occurrence: JP)
  Receive Date: 20230214
  Receipt Date: 20230309
  Transmission Date: 20230417
  Serious: Yes (Other)
  Sender: FDA-Public Use
  Company Number: JP-Accord-300410

PATIENT
  Age: 78 Year
  Sex: Male
  Weight: 63.5 kg

DRUGS (2)
  1. FLUOROURACIL [Suspect]
     Active Substance: FLUOROURACIL
     Indication: Metastases to liver
  2. NEDAPLATIN [Suspect]
     Active Substance: NEDAPLATIN
     Indication: Metastases to liver

REACTIONS (2)
  - Abdominal infection [Unknown]
  - Intestinal obstruction [Unknown]
